FAERS Safety Report 25628581 (Version 1)
Quarter: 2025Q3

REPORT INFORMATION
  Report Type: Report from Study
  Country: TW (occurrence: TW)
  Receive Date: 20250731
  Receipt Date: 20250731
  Transmission Date: 20251020
  Serious: Yes (Death, Other)
  Sender: TAKEDA
  Company Number: TW-JNJFOC-20250735399

PATIENT
  Sex: Female

DRUGS (1)
  1. BORTEZOMIB [Suspect]
     Active Substance: BORTEZOMIB
     Indication: Plasma cell myeloma

REACTIONS (1)
  - Death [Fatal]

NARRATIVE: CASE EVENT DATE: 20250625
